FAERS Safety Report 4404709-5 (Version None)
Quarter: 2004Q3

REPORT INFORMATION
  Report Type: 
  Country: None (occurrence: None)
  Receive Date: 20040720
  Receipt Date: 20040705
  Transmission Date: 20050211
  Serious: Yes (Death)
  Sender: FDA-Public Use
  Company Number: IL-SHR-04-023230

PATIENT
  Age: 56 Year
  Sex: Male

DRUGS (4)
  1. FLUDARA [Suspect]
     Indication: ALLOGENIC BONE MARROW TRANSPLANTATION THERAPY
  2. MELPHALAN (MELPHALAN) [Concomitant]
  3. CYCLOSPORINE [Concomitant]
  4. METHOTREXATE [Concomitant]

REACTIONS (7)
  - CEREBROVASCULAR DISORDER [None]
  - CONVULSION [None]
  - DRUG TOXICITY [None]
  - GRAFT VERSUS HOST DISEASE [None]
  - HAEMOLYSIS [None]
  - THROMBOCYTOPENIA [None]
  - THROMBOTIC MICROANGIOPATHY [None]
